FAERS Safety Report 25965102 (Version 1)
Quarter: 2025Q4

REPORT INFORMATION
  Report Type: Report from Study
  Country: EU (occurrence: EU)
  Receive Date: 20251027
  Receipt Date: 20251027
  Transmission Date: 20260117
  Serious: Yes (Hospitalization)
  Sender: SERVIER
  Company Number: EU-SERVIER-S25010544

PATIENT

DRUGS (9)
  1. PEGASPARGASE [Suspect]
     Active Substance: PEGASPARGASE
     Indication: Acute lymphocytic leukaemia
     Dosage: 3300 IU, OTHER
     Route: 042
     Dates: start: 20190816, end: 20190930
  2. DOXORUBICIN [Suspect]
     Active Substance: DOXORUBICIN
     Indication: Acute lymphocytic leukaemia
     Dosage: 32 MG, OTHER, (D1, D8, D15)
     Route: 042
     Dates: start: 20190814, end: 20190829
  3. VINCRISTINE [Suspect]
     Active Substance: VINCRISTINE
     Indication: Acute lymphocytic leukaemia
     Dosage: 1.9 MG, OTHER  (D1, D8, D15, D43 D50)
     Route: 042
     Dates: start: 20190814, end: 20191007
  4. CYTARABINE [Suspect]
     Active Substance: CYTARABINE
     Indication: Acute lymphocytic leukaemia
     Dosage: 100 MG, OTHER (D31, D32, D33, D34, D38, D39)
     Route: 042
     Dates: start: 20190918, end: 20190927
  5. CYTARABINE [Suspect]
     Active Substance: CYTARABINE
     Dosage: 30 MG, OTHER (D4, D31)
     Route: 037
     Dates: start: 20190816, end: 20190918
  6. METHOTREXATE [Suspect]
     Active Substance: METHOTREXATE
     Indication: Acute lymphocytic leukaemia
     Dosage: 15 MG, OTHER (D4, D31)
     Route: 037
     Dates: start: 20190816, end: 20190918
  7. HYDROCORTISONE [Suspect]
     Active Substance: HYDROCORTISONE
     Indication: Acute lymphocytic leukaemia
     Dosage: 15 MG, OTHER (D4, D31)
     Route: 037
     Dates: start: 20190816, end: 20190918
  8. DEXAMETHASONE [Suspect]
     Active Substance: DEXAMETHASONE
     Indication: Acute lymphocytic leukaemia
     Dosage: 13.5 MG, OTHER (D1 TO D7, D15 TO D21)
     Route: 048
     Dates: start: 20190814, end: 20190905
  9. THIOGUANINE [Suspect]
     Active Substance: THIOGUANINE
     Indication: Acute lymphocytic leukaemia
     Dosage: 80 MG, OTHER (D29 TO D42)
     Route: 048
     Dates: start: 20190916, end: 20190928

REACTIONS (1)
  - Myalgia [Recovered/Resolved]

NARRATIVE: CASE EVENT DATE: 20190906
